FAERS Safety Report 25995123 (Version 1)
Quarter: 2025Q4

REPORT INFORMATION
  Report Type: Other
  Country: CN (occurrence: CN)
  Receive Date: 20251104
  Receipt Date: 20251104
  Transmission Date: 20260117
  Serious: Yes (Hospitalization, Other)
  Sender: QILU PHARMACEUTICAL (HAINAN) CO., LTD.
  Company Number: CN-QILU PHARMACEUTICAL (HAINAN) CO.  LTD.-QLH-000344-2025

PATIENT
  Age: 60 Year
  Sex: Female
  Weight: 50.4 kg

DRUGS (9)
  1. PEMETREXED DISODIUM [Suspect]
     Active Substance: PEMETREXED DISODIUM
     Indication: Lung neoplasm malignant
     Dosage: 600 MG PER DAY
     Route: 041
     Dates: start: 20250620, end: 20250620
  2. PEMETREXED DISODIUM [Suspect]
     Active Substance: PEMETREXED DISODIUM
     Dosage: 600 MG PER DAY
     Route: 041
     Dates: start: 20250812, end: 20250812
  3. PEMETREXED DISODIUM [Suspect]
     Active Substance: PEMETREXED DISODIUM
     Dosage: 600 MG PER DAY
     Route: 041
     Dates: start: 20250909, end: 20250909
  4. CISPLATIN [Suspect]
     Active Substance: CISPLATIN
     Indication: Lung neoplasm malignant
     Dosage: 70 MG
     Route: 065
     Dates: start: 20250620
  5. CISPLATIN [Suspect]
     Active Substance: CISPLATIN
     Dosage: 20 MG PER DAY
     Route: 041
     Dates: start: 20250812, end: 20250813
  6. CISPLATIN [Suspect]
     Active Substance: CISPLATIN
     Dosage: 20 MG PER DAY
     Route: 041
     Dates: start: 20250909, end: 20250911
  7. SINTILIMAB [Suspect]
     Active Substance: SINTILIMAB
     Indication: Lung neoplasm malignant
     Dosage: 200 MG
     Route: 065
     Dates: start: 20250620
  8. SINTILIMAB [Suspect]
     Active Substance: SINTILIMAB
     Dosage: 200 MG PER DAY
     Route: 041
     Dates: start: 20250812, end: 20250812
  9. SINTILIMAB [Concomitant]
     Active Substance: SINTILIMAB
     Indication: Lung neoplasm malignant
     Dosage: 200 MG DAILY
     Route: 042
     Dates: start: 20250910, end: 20250910

REACTIONS (2)
  - Pyelonephritis acute [Recovering/Resolving]
  - Atrophic vulvovaginitis [Recovering/Resolving]

NARRATIVE: CASE EVENT DATE: 20251015
